FAERS Safety Report 8772151 (Version 3)
Quarter: 2013Q3

REPORT INFORMATION
  Report Type: Spontaneous
  Country: US (occurrence: US)
  Receive Date: 20120905
  Receipt Date: 20130718
  Transmission Date: 20140515
  Serious: Yes (Hospitalization, Disabling, Other)
  Sender: FDA-Public Use
  Company Number: US-009507513-1208USA012648

PATIENT
  Sex: Female
  Weight: 77.98 kg

DRUGS (2)
  1. NUVARING [Suspect]
     Indication: CONTRACEPTION
     Dosage: UNK
     Route: 067
     Dates: start: 20100701, end: 20100927
  2. NUVARING [Suspect]
     Indication: MENSTRUAL CYCLE MANAGEMENT

REACTIONS (7)
  - Chest pain [Unknown]
  - Pulmonary embolism [Unknown]
  - Deep vein thrombosis [Unknown]
  - Thrombophlebitis [Unknown]
  - Urinary tract infection [Unknown]
  - Off label use [Unknown]
  - Anxiety [Unknown]
